FAERS Safety Report 5064866-7 (Version None)
Quarter: 2006Q3

REPORT INFORMATION
  Report Type: 
  Country: None (occurrence: None)
  Receive Date: 20060728
  Receipt Date: 20060721
  Transmission Date: 20061208
  Serious: Yes (Other)
  Sender: FDA-Public Use
  Company Number: AU-NOVOPROD-255280

PATIENT
  Age: 49 Year
  Sex: Male
  Weight: 100 kg

DRUGS (8)
  1. NOVOSEVEN [Suspect]
     Indication: TRAUMATIC HAEMORRHAGE
     Dosage: 3 DOSES
     Route: 042
     Dates: start: 20060713, end: 20060713
  2. CEFAZOLIN [Concomitant]
     Indication: PROPHYLAXIS
     Dosage: 2 G, QD
     Route: 042
     Dates: start: 20060714
  3. PANTOPRAZOLE SODIUM [Concomitant]
     Indication: PROPHYLAXIS
     Dosage: 40 MG, QD
     Route: 042
     Dates: start: 20060714
  4. ACETYLSALICYLIC ACID SRT [Concomitant]
     Indication: PROPHYLAXIS
     Dosage: 100 MG, QD
     Route: 048
     Dates: start: 20060714
  5. ENOXAPARIN SODIUM [Concomitant]
     Indication: PROPHYLAXIS
     Dosage: 40 MG, QD
     Route: 058
     Dates: start: 20060714
  6. MIDAZOLAM HYDROCHLORIDE [Concomitant]
     Indication: SEDATION
     Dosage: 5 MG, QID
     Route: 042
     Dates: start: 20060715, end: 20060715
  7. POTASSIUM PHOSPHATE MONOBASIC [Concomitant]
     Indication: ELECTROLYTE SUBSTITUTION THERAPY
     Dosage: 20 MEQ, QD
     Route: 042
     Dates: start: 20060715, end: 20060715
  8. MORPHINE [Concomitant]
     Indication: ANALGESIC EFFECT
     Dosage: 1 MG/ML
     Route: 042
     Dates: start: 20060715

REACTIONS (1)
  - GRAFT THROMBOSIS [None]
